FAERS Safety Report 5678159-8 (Version None)
Quarter: 2008Q1

REPORT INFORMATION
  Report Type: 
  Country: None (occurrence: None)
  Receive Date: 20080319
  Receipt Date: 20080304
  Transmission Date: 20080703
  Serious: Yes (Other)
  Sender: FDA-Public Use
  Company Number: 8030579

PATIENT
  Sex: Female

DRUGS (1)
  1. KEPPRA [Suspect]
     Dosage: 2500 MG 1/D

REACTIONS (5)
  - CONDITION AGGRAVATED [None]
  - CONVULSION [None]
  - HALLUCINATION [None]
  - SLEEP DISORDER [None]
  - STATUS EPILEPTICUS [None]
